FAERS Safety Report 25325484 (Version 1)
Quarter: 2025Q2

REPORT INFORMATION
  Report Type: Spontaneous
  Country: AU (occurrence: AU)
  Receive Date: 20250516
  Receipt Date: 20250516
  Transmission Date: 20250716
  Serious: Yes (Congenital Anomaly, Other)
  Sender: SANDOZ
  Company Number: AU-002147023-NVSC2025AU075076

PATIENT

DRUGS (4)
  1. ASCIMINIB [Suspect]
     Active Substance: ASCIMINIB
     Indication: Foetal exposure during pregnancy
     Route: 064
     Dates: start: 20230627, end: 20231122
  2. QUETIAPINE [Suspect]
     Active Substance: QUETIAPINE
     Indication: Foetal exposure during pregnancy
     Route: 064
  3. RISPERIDONE [Suspect]
     Active Substance: RISPERIDONE
     Indication: Foetal exposure during pregnancy
     Route: 064
  4. SERTRALINE HYDROCHLORIDE [Suspect]
     Active Substance: SERTRALINE HYDROCHLORIDE
     Indication: Foetal exposure during pregnancy
     Route: 064

REACTIONS (2)
  - Talipes [Unknown]
  - Foetal exposure timing unspecified [Unknown]
